FAERS Safety Report 19486181 (Version 4)
Quarter: 2021Q3

REPORT INFORMATION
  Report Type: Spontaneous
  Country: GB (occurrence: GB)
  Receive Date: 20210702
  Receipt Date: 20210714
  Transmission Date: 20211014
  Serious: No
  Sender: FDA-Public Use
  Company Number: GB-JNJFOC-20210629721

PATIENT
  Age: 67 Year
  Sex: Female

DRUGS (2)
  1. SIMPONI [Suspect]
     Active Substance: GOLIMUMAB
     Indication: SERONEGATIVE ARTHRITIS
     Dosage: STRENGTH: 50.00 MG / 0.50 ML
     Route: 058
  2. METOJECT [Concomitant]
     Active Substance: METHOTREXATE SODIUM
     Indication: PRODUCT USED FOR UNKNOWN INDICATION
     Route: 065

REACTIONS (7)
  - Device leakage [Unknown]
  - Self-medication [Unknown]
  - Injection site bruising [Unknown]
  - Contusion [Unknown]
  - Underdose [Unknown]
  - Accidental exposure to product [Unknown]
  - Device use error [Unknown]
